FAERS Safety Report 9405896 (Version 3)
Quarter: 2014Q1

REPORT INFORMATION
  Report Type: Spontaneous
  Country: US (occurrence: US)
  Receive Date: 20130717
  Receipt Date: 20140205
  Transmission Date: 20141002
  Serious: Yes (Hospitalization)
  Sender: FDA-Public Use
  Company Number: US-GLAXOSMITHKLINE-A1033292A

PATIENT
  Age: 50 Year
  Sex: Male
  Weight: 90.9 kg

DRUGS (2)
  1. AVANDIA [Suspect]
     Indication: TYPE 2 DIABETES MELLITUS
     Route: 048
     Dates: start: 200505, end: 200811
  2. AVANDAMET [Suspect]
     Indication: TYPE 2 DIABETES MELLITUS
     Route: 048
     Dates: start: 200501, end: 200502

REACTIONS (5)
  - Myocardial infarction [Unknown]
  - Cardiac operation [Unknown]
  - Acute coronary syndrome [Unknown]
  - Coronary artery bypass [Unknown]
  - Coronary artery disease [Unknown]
